FAERS Safety Report 6139176-7 (Version None)
Quarter: 2009Q2

REPORT INFORMATION
  Report Type: 
  Country: None (occurrence: None)
  Receive Date: 20090401
  Receipt Date: 20090324
  Transmission Date: 20091009
  Serious: Yes (Other)
  Sender: FDA-Public Use
  Company Number: FR-PFIZER INC-2009188613

PATIENT

DRUGS (1)
  1. PREPIDIL [Suspect]
     Indication: LABOUR INDUCTION
     Route: 019

REACTIONS (2)
  - COMPLICATION OF DELIVERY [None]
  - UTERINE HAEMORRHAGE [None]
